FAERS Safety Report 8587123-0 (Version None)
Quarter: 2012Q3

REPORT INFORMATION
  Report Type: 
  Country: None (occurrence: None)
  Receive Date: 20120810
  Receipt Date: 20120328
  Transmission Date: 20120928
  Serious: No
  Sender: FDA-Public Use
  Company Number: US-ASTRAZENECA-2011SE22166

PATIENT
  Age: 51 Year
  Sex: Female

DRUGS (4)
  1. SEROQUEL [Suspect]
     Dosage: TWO 50MG IN THE AFTERNOON,ONE 200MG IN THE MORNING AND ONE 200MG  IN THE EVENING
     Route: 048
  2. SEROQUEL [Suspect]
     Dosage: TWO 50MG IN THE AFTERNOON,ONE 200MG IN THE MORNING AND ONE 200MG  IN THE EVENING
     Route: 048
  3. SEROQUEL [Suspect]
     Indication: BIPOLAR DISORDER
     Dosage: 50 MG AND 200 MG DAILY
     Route: 048
  4. SEROQUEL [Suspect]
     Indication: POST-TRAUMATIC STRESS DISORDER
     Dosage: 50 MG AND 200 MG DAILY
     Route: 048

REACTIONS (3)
  - ADVERSE EVENT [None]
  - FEELING ABNORMAL [None]
  - DRUG DOSE OMISSION [None]
